FAERS Safety Report 14619375 (Version 2)
Quarter: 2018Q3

REPORT INFORMATION
  Report Type: Spontaneous
  Country: IT (occurrence: IT)
  Receive Date: 20180309
  Receipt Date: 20180705
  Transmission Date: 20181010
  Serious: Yes (Hospitalization)
  Sender: FDA-Public Use
  Company Number: IT-AUROBINDO-AUR-APL-2018-012086

PATIENT
  Age: 26 Year
  Sex: Female

DRUGS (1)
  1. SUMATRIPTAN FILMCOATED TABLET [Suspect]
     Active Substance: SUMATRIPTAN
     Indication: HEADACHE
     Dosage: 50 MILLIGRAM, AS NECESSARY
     Route: 048
     Dates: start: 20170319, end: 20170319

REACTIONS (1)
  - Dyspnoea [Recovering/Resolving]

NARRATIVE: CASE EVENT DATE: 20170319
